FAERS Safety Report 24637969 (Version 2)
Quarter: 2025Q1

REPORT INFORMATION
  Report Type: Spontaneous
  Country: US (occurrence: US)
  Receive Date: 20241119
  Receipt Date: 20250128
  Transmission Date: 20250408
  Serious: Yes (Other)
  Sender: NOVARTIS
  Company Number: US-002147023-NVSC2024US220175

PATIENT
  Sex: Female

DRUGS (1)
  1. ZOLGENSMA [Suspect]
     Active Substance: ONASEMNOGENE ABEPARVOVEC-XIOI
     Indication: Spinal muscular atrophy
     Route: 042
     Dates: start: 20240517, end: 20240517

REACTIONS (3)
  - Spinal muscular atrophy [Unknown]
  - Muscle contractions involuntary [Unknown]
  - Hypotonia [Unknown]
